FAERS Safety Report 17727564 (Version 3)
Quarter: 2021Q2

REPORT INFORMATION
  Report Type: Spontaneous
  Country: US (occurrence: US)
  Receive Date: 20200430
  Receipt Date: 20210419
  Transmission Date: 20210716
  Serious: Yes (Hospitalization, Other)
  Sender: FDA-Public Use
  Company Number: US-ABBVIE-20K-163-3385507-00

PATIENT
  Age: 10 Year
  Sex: Male
  Weight: 48.3 kg

DRUGS (1)
  1. LUPRON DEPOT?PED [Suspect]
     Active Substance: LEUPROLIDE ACETATE
     Indication: PRECOCIOUS PUBERTY
     Route: 030
     Dates: start: 20190430, end: 20191028

REACTIONS (3)
  - Urinary incontinence [Recovered/Resolved]
  - Seizure [Recovering/Resolving]
  - Tongue biting [Recovered/Resolved]

NARRATIVE: CASE EVENT DATE: 20200412
